FAERS Safety Report 7907422-2 (Version None)
Quarter: 2011Q4

REPORT INFORMATION
  Report Type: 
  Country: None (occurrence: None)
  Receive Date: 20111109
  Receipt Date: 20111109
  Transmission Date: 20120403
  Serious: Yes (Life-Threatening)
  Sender: FDA-Public Use
  Company Number: None

PATIENT
  Sex: Male

DRUGS (1)
  1. AVELOX [Suspect]
     Dosage: 400MG ONCE IV ONCE
     Route: 042

REACTIONS (9)
  - UNRESPONSIVE TO STIMULI [None]
  - CONVULSION [None]
  - BRADYCARDIA [None]
  - ANAEMIA [None]
  - RHABDOMYOLYSIS [None]
  - HYPERKALAEMIA [None]
  - APNOEIC ATTACK [None]
  - HYPOXIA [None]
  - METABOLIC ACIDOSIS [None]
